FAERS Safety Report 13096003 (Version 1)
Quarter: 2017Q1

REPORT INFORMATION
  Report Type: Spontaneous
  Country: US (occurrence: US)
  Receive Date: 20170109
  Receipt Date: 20170109
  Transmission Date: 20170428
  Serious: Yes (Death, Hospitalization)
  Sender: FDA-Public Use
  Company Number: US-ACCORD-047087

PATIENT
  Age: 66 Year
  Sex: Male

DRUGS (6)
  1. CISPLATIN. [Suspect]
     Active Substance: CISPLATIN
     Indication: HISTIOCYTOSIS HAEMATOPHAGIC
     Dosage: R-ESHAP, DAYS 26 TO 29
  2. ETOPOSIDE. [Suspect]
     Active Substance: ETOPOSIDE
     Indication: HISTIOCYTOSIS HAEMATOPHAGIC
     Dosage: DAYS 26 TO 29)
  3. CYTARABINE/CYTARABINE HYDROCHLORIDE/CYTARABINE OCFOSFATE [Suspect]
     Active Substance: CYTARABINE
     Indication: HISTIOCYTOSIS HAEMATOPHAGIC
     Dosage: R-ESHAP, DOSE REDUCED TO 1000 MG/M2 DAY 30
  4. DEXAMETHASONE. [Concomitant]
     Active Substance: DEXAMETHASONE
     Indication: HISTIOCYTOSIS HAEMATOPHAGIC
     Dosage: 2-WEEK COURSE
  5. RITUXIMAB [Suspect]
     Active Substance: RITUXIMAB
     Indication: HISTIOCYTOSIS HAEMATOPHAGIC
     Dosage: R-ESHAP, DAY 25
  6. METHYLPREDNISOLONE. [Suspect]
     Active Substance: METHYLPREDNISOLONE
     Indication: HISTIOCYTOSIS HAEMATOPHAGIC
     Dosage: R-ESHAP, DAYS 26 TO 28

REACTIONS (9)
  - Enterococcal infection [Fatal]
  - Hepatitis A antibody [None]
  - Hodgkin^s disease [None]
  - Hepatitis B surface antigen [None]
  - Enterococcal bacteraemia [None]
  - Large intestine perforation [Fatal]
  - Chronic hepatitis [None]
  - Pancytopenia [Fatal]
  - Cholecystitis chronic [None]
